FAERS Safety Report 7363654-6 (Version None)
Quarter: 2011Q1

REPORT INFORMATION
  Report Type: 
  Country: None (occurrence: None)
  Receive Date: 20110321
  Receipt Date: 20110310
  Transmission Date: 20110831
  Serious: Yes (Death, Life-Threatening)
  Sender: FDA-Public Use
  Company Number: JP-NOVOPROD-323923

PATIENT
  Sex: Male
  Weight: 45 kg

DRUGS (3)
  1. ASPIRIN [Concomitant]
     Route: 048
  2. BLOOD TRANSFUSION, AUXILIARY PRODUCTS [Concomitant]
  3. NOVOSEVEN [Suspect]
     Indication: HAEMORRHAGE
     Dosage: 25 MG (EVERY 3HOURS), QD
     Route: 042
     Dates: start: 20110221, end: 20110222

REACTIONS (5)
  - HEPATIC FUNCTION ABNORMAL [None]
  - RENAL IMPAIRMENT [None]
  - PLATELET COUNT DECREASED [None]
  - CREATININE RENAL CLEARANCE ABNORMAL [None]
  - THROMBOSIS [None]
